FAERS Safety Report 8575733-6 (Version None)
Quarter: 2012Q3

REPORT INFORMATION
  Report Type: 
  Country: None (occurrence: None)
  Receive Date: 20120807
  Receipt Date: 20120730
  Transmission Date: 20120928
  Serious: Yes (Other)
  Sender: FDA-Public Use
  Company Number: JP-BRISTOL-MYERS SQUIBB COMPANY-16746786

PATIENT
  Sex: Female

DRUGS (6)
  1. RAMELTEON [Concomitant]
  2. TAXOL [Suspect]
  3. PARAPLATIN AQ [Suspect]
  4. FAMOTIDINE [Concomitant]
  5. DECADRON PHOSPHATE [Concomitant]
  6. POLARAMINE [Concomitant]

REACTIONS (1)
  - ALTERED STATE OF CONSCIOUSNESS [None]
